FAERS Safety Report 15498413 (Version 1)
Quarter: 2018Q4

REPORT INFORMATION
  Report Type: Spontaneous
  Country: US (occurrence: US)
  Receive Date: 20181015
  Receipt Date: 20181015
  Transmission Date: 20190205
  Serious: No
  Sender: FDA-Public Use
  Company Number: None

PATIENT
  Age: 27 Year
  Sex: Female
  Weight: 57.15 kg

DRUGS (1)
  1. BUPRENORPHINE/ NALOXONE [Suspect]
     Active Substance: BUPRENORPHINE\NALOXONE
     Dates: start: 20180307, end: 20181009

REACTIONS (1)
  - Drug ineffective [None]

NARRATIVE: CASE EVENT DATE: 20181009
